FAERS Safety Report 11590162 (Version 2)
Quarter: 2015Q4

REPORT INFORMATION
  Report Type: Spontaneous
  Country: US (occurrence: US)
  Receive Date: 20151002
  Receipt Date: 20151106
  Transmission Date: 20160304
  Serious: Yes (Death, Hospitalization)
  Sender: FDA-Public Use
  Company Number: US-INCYTE CORPORATION-2015IN004893

PATIENT
  Sex: Female

DRUGS (24)
  1. JAKAFI [Suspect]
     Active Substance: RUXOLITINIB
     Dosage: 5 MG, BID
     Route: 048
  2. CYCLOSPORINE. [Concomitant]
     Active Substance: CYCLOSPORINE
  3. VALTREX [Concomitant]
     Active Substance: VALACYCLOVIR HYDROCHLORIDE
  4. MYFORTIC [Concomitant]
     Active Substance: MYCOPHENOLATE SODIUM
  5. ZOSYN [Concomitant]
     Active Substance: PIPERACILLIN SODIUM\TAZOBACTAM SODIUM
  6. LASIX [Concomitant]
     Active Substance: FUROSEMIDE
  7. TPN [Concomitant]
     Active Substance: AMINO ACIDS\DEXTROSE\ELECTROLYTES NOS\SOYBEAN OIL
  8. CITALOPRAM [Concomitant]
     Active Substance: CITALOPRAM HYDROBROMIDE
  9. LITHIUM. [Concomitant]
     Active Substance: LITHIUM
  10. VANCOMYCIN [Concomitant]
     Active Substance: VANCOMYCIN
  11. BECLOMETHASONE                     /00212602/ [Concomitant]
  12. TUMS                               /00193601/ [Concomitant]
     Active Substance: CALCIUM CARBONATE\MAGNESIUM CARBONATE\MAGNESIUM TRISILICATE
  13. BUDESONIDE ALPHARMA NEVEL 100 [Concomitant]
  14. METHYLPREDNISOLONE. [Concomitant]
     Active Substance: METHYLPREDNISOLONE
  15. HEPARIN [Concomitant]
     Active Substance: HEPARIN SODIUM
  16. DILAUDID [Concomitant]
     Active Substance: HYDROMORPHONE HYDROCHLORIDE
  17. JAKAFI [Suspect]
     Active Substance: RUXOLITINIB
     Indication: GRAFT VERSUS HOST DISEASE
     Dosage: 10 MG, BID
     Route: 048
  18. VORICONAZOLE. [Concomitant]
     Active Substance: VORICONAZOLE
  19. URSODIOL. [Concomitant]
     Active Substance: URSODIOL
  20. VITAMIN D                          /00107901/ [Concomitant]
     Active Substance: ERGOCALCIFEROL
  21. PROTONIX [Concomitant]
     Active Substance: PANTOPRAZOLE SODIUM
  22. OXYCONTIN [Concomitant]
     Active Substance: OXYCODONE HYDROCHLORIDE
  23. BACTRIM [Concomitant]
     Active Substance: SULFAMETHOXAZOLE\TRIMETHOPRIM
  24. INSULIN [Concomitant]
     Active Substance: INSULIN NOS

REACTIONS (5)
  - Diarrhoea [Recovering/Resolving]
  - Graft versus host disease [Unknown]
  - Off label use [Unknown]
  - Septic shock [Fatal]
  - Thrombocytopenia [Not Recovered/Not Resolved]
